FAERS Safety Report 24902559 (Version 1)
Quarter: 2025Q1

REPORT INFORMATION
  Report Type: Spontaneous
  Country: US (occurrence: US)
  Receive Date: 20250130
  Receipt Date: 20250130
  Transmission Date: 20250409
  Serious: No
  Sender: Steriscience PTE
  Company Number: US-STERISCIENCE B.V.-2024-ST-001793

PATIENT
  Age: 12 Year
  Sex: Male

DRUGS (2)
  1. ACETYLCYSTEINE [Suspect]
     Active Substance: ACETYLCYSTEINE
     Indication: Erythromelalgia
     Route: 065
  2. Immunoglobulin [Concomitant]
     Indication: Erythromelalgia
     Route: 042

REACTIONS (1)
  - Off label use [Unknown]
